FAERS Safety Report 4753469-7 (Version None)
Quarter: 2005Q3

REPORT INFORMATION
  Report Type: 
  Country: None (occurrence: None)
  Receive Date: 20050824
  Receipt Date: 20050811
  Transmission Date: 20060218
  Serious: Yes (Hospitalization)
  Sender: FDA-Public Use
  Company Number: US-2005-017015

PATIENT
  Age: 64 Year
  Sex: Male

DRUGS (3)
  1. LEUKINE 250 MCG(LEUKINE 250 MCG) INJECTION [Suspect]
     Indication: RENAL CELL CARCINOMA STAGE UNSPECIFIED
     Dosage: 250 UG/KG, DAYS 1 0, SUBCUTANEOUS
     Route: 058
     Dates: start: 20050801
  2. PEGINTERFERON ALFA-2B (PEGINTERFERON ALFA-2B) [Suspect]
     Indication: RENAL CELL CARCINOMA STAGE UNSPECIFIED
     Dosage: 1 UG/KG, DAY 1 + DAY 8, SUBCUTANEOUS
     Route: 058
     Dates: start: 20050801
  3. THALIDOMIDE (THALIDOMIDE) [Suspect]
     Indication: RENAL CELL CARCINOMA STAGE UNSPECIFIED
     Dosage: 200 MG, 1X/DAY, ORAL
     Route: 048
     Dates: start: 20050801

REACTIONS (3)
  - ANAEMIA [None]
  - DEHYDRATION [None]
  - HYPERCALCAEMIA [None]
